FAERS Safety Report 5403922-8 (Version None)
Quarter: 2007Q3

REPORT INFORMATION
  Report Type: 
  Country: None (occurrence: None)
  Receive Date: 20070731
  Receipt Date: 20070731
  Transmission Date: 20080115
  Serious: Yes (Hospitalization)
  Sender: FDA-Public Use
  Company Number: None

PATIENT
  Sex: Male
  Weight: 107 kg

DRUGS (14)
  1. IRINOTECAN HCL [Suspect]
     Indication: GLIOBLASTOMA MULTIFORME
     Dosage: 125 MG/M2 DAY 1,8,22,29 IV
     Route: 042
     Dates: start: 20070711
  2. IRINOTECAN HCL [Suspect]
     Indication: GLIOBLASTOMA MULTIFORME
     Dosage: 125 MG/M2 DAY 1,8,22,29 IV
     Route: 042
     Dates: start: 20070718
  3. IRINOTECAN HCL [Suspect]
     Indication: GLIOBLASTOMA MULTIFORME
     Dosage: 125 MG/M2 DAY 1,8,22,29 IV
     Route: 042
     Dates: start: 20070724
  4. TEMODAR [Suspect]
     Indication: GLIOBLASTOMA MULTIFORME
     Dosage: 200 MG/M2 DAYS 1-5 PO
     Route: 048
     Dates: start: 20070711, end: 20070715
  5. DEXAMETHASONE 0.5MG TAB [Concomitant]
  6. BENASEPRIL [Concomitant]
  7. ZANTAC 150 [Concomitant]
  8. FINASTERIDE [Concomitant]
  9. HYDROCHLOROTHIAZIDE [Concomitant]
  10. POTASSIUM CHLORIDE [Concomitant]
  11. COREG [Concomitant]
  12. METFORMIN HCL [Concomitant]
  13. CRESTOR [Concomitant]
  14. SSI [Concomitant]

REACTIONS (2)
  - HYPONATRAEMIA [None]
  - NEUTROPENIA [None]
